FAERS Safety Report 5257799-4 (Version None)
Quarter: 2007Q1

REPORT INFORMATION
  Report Type: 
  Country: None (occurrence: None)
  Receive Date: 20070307
  Receipt Date: 20070228
  Transmission Date: 20070707
  Serious: Yes (Other)
  Sender: FDA-Public Use
  Company Number: 2007AP01347

PATIENT
  Age: 90 Year
  Sex: Female

DRUGS (4)
  1. TENORMIN [Suspect]
     Indication: HYPERTENSION
     Route: 048
  2. TENORMIN [Interacting]
     Route: 048
     Dates: end: 20070224
  3. GLUCOBAY [Interacting]
     Indication: DIABETES MELLITUS
     Route: 048
  4. VALSARTAN [Concomitant]

REACTIONS (4)
  - ANOREXIA [None]
  - ARRHYTHMIA [None]
  - DRUG INTERACTION [None]
  - HYPOGLYCAEMIA [None]
